FAERS Safety Report 15718368 (Version 1)
Quarter: 2018Q4

REPORT INFORMATION
  Report Type: Spontaneous
  Country: US (occurrence: US)
  Receive Date: 20181213
  Receipt Date: 20181213
  Transmission Date: 20190205
  Serious: No
  Sender: FDA-Public Use
  Company Number: US-ASTELLAS-2018US046483

PATIENT
  Sex: Female

DRUGS (2)
  1. TARCEVA [Suspect]
     Active Substance: ERLOTINIB HYDROCHLORIDE
     Route: 048
     Dates: start: 201810
  2. TARCEVA [Suspect]
     Active Substance: ERLOTINIB HYDROCHLORIDE
     Indication: PRODUCT USED FOR UNKNOWN INDICATION
     Route: 048
     Dates: start: 20181017

REACTIONS (6)
  - Urine output decreased [Unknown]
  - Tongue eruption [Unknown]
  - Rash [Unknown]
  - Constipation [Recovering/Resolving]
  - Dry eye [Unknown]
  - Diarrhoea [Recovered/Resolved]
